FAERS Safety Report 5517599-4 (Version None)
Quarter: 2007Q4

REPORT INFORMATION
  Report Type: 
  Country: None (occurrence: None)
  Receive Date: 20071114
  Receipt Date: 20071103
  Transmission Date: 20080405
  Serious: Yes (Other)
  Sender: FDA-Public Use
  Company Number: US-PFIZER INC-2007093031

PATIENT
  Sex: Female

DRUGS (2)
  1. COLESTID TABLET [Suspect]
  2. DRUG, UNSPECIFIED [Suspect]

REACTIONS (2)
  - ANAPHYLACTIC SHOCK [None]
  - HAEMORRHAGE [None]
